FAERS Safety Report 20738541 (Version 1)
Quarter: 2022Q2

REPORT INFORMATION
  Report Type: Spontaneous
  Country: US (occurrence: US)
  Receive Date: 20220422
  Receipt Date: 20220422
  Transmission Date: 20220721
  Serious: No
  Sender: FDA-Public Use
  Company Number: US-NEBO-PC008260

PATIENT
  Age: 29 Year
  Sex: Female
  Weight: 128.8 kg

DRUGS (1)
  1. MONOFERRIC [Suspect]
     Active Substance: FERRIC DERISOMALTOSE
     Indication: Iron deficiency anaemia
     Route: 042
     Dates: start: 20220119, end: 20220119

REACTIONS (1)
  - Infusion site warmth [Recovered/Resolved]

NARRATIVE: CASE EVENT DATE: 20220119
